FAERS Safety Report 5696287-8 (Version None)
Quarter: 2008Q2

REPORT INFORMATION
  Report Type: 
  Country: None (occurrence: None)
  Receive Date: 20080407
  Receipt Date: 20080328
  Transmission Date: 20081010
  Serious: Yes (Hospitalization, Other)
  Sender: FDA-Public Use
  Company Number: US-ELI_LILLY_AND_COMPANY-US200803000529

PATIENT
  Sex: Female

DRUGS (9)
  1. FORTEO [Suspect]
     Indication: OSTEOPOROSIS
     Dosage: 20 UG, UNK
     Dates: start: 20080101
  2. VITAMIN B [Concomitant]
  3. MULTI-VITAMIN [Concomitant]
  4. FOLIC ACID [Concomitant]
     Dosage: 1 MG, UNK
  5. OSCAL D [Concomitant]
     Dosage: 60 MG, 2/D
  6. REFRESH [Concomitant]
     Dosage: UNK, AS NEEDED
  7. CLARITIN [Concomitant]
     Dosage: 10 MG, DAILY (1/D)
  8. PEPCID [Concomitant]
     Dosage: 20 MG, DAILY (1/D)
  9. ASCORBIC ACID [Concomitant]

REACTIONS (3)
  - BRADYCARDIA [None]
  - FALL [None]
  - SYNCOPE [None]
